FAERS Safety Report 5113943-0 (Version None)
Quarter: 2006Q3

REPORT INFORMATION
  Report Type: 
  Country: None (occurrence: None)
  Receive Date: 20060921
  Receipt Date: 20060911
  Transmission Date: 20061208
  Serious: Yes (Life-Threatening, Hospitalization)
  Sender: FDA-Public Use
  Company Number: A001-412-3855

PATIENT
  Age: 80 Year
  Sex: Male
  Weight: 77 kg

DRUGS (15)
  1. DONEPEZIL HCL [Suspect]
     Indication: COGNITIVE DISORDER
     Dosage: 5 MG, 1 IN 1 D, ORAL
     Route: 048
     Dates: start: 20041214, end: 20050123
  2. ARICEPT [Suspect]
     Dosage: 5 MG, 1 IN 1 D, ORAL
     Route: 048
     Dates: start: 20050907, end: 20050912
  3. FUROSEMIDE [Concomitant]
  4. FLUTICASONE PROPIONATE [Concomitant]
  5. ALBUTEROL SULFATE [Concomitant]
  6. PRAVASTATIN [Concomitant]
  7. SALICYLATE (SALICYLATE SODIUM) [Concomitant]
  8. LEVOTHYROXINE SODIUM [Concomitant]
  9. PROPRANOLOL HYDROCHLORIDE [Concomitant]
  10. TAMSULOSIN HCL [Concomitant]
  11. LORATADINE [Concomitant]
  12. EXETIMBE [Concomitant]
  13. CLOPIDOGREL [Concomitant]
  14. NIACIN [Concomitant]
  15. FISH OIL (FISH OIL) [Concomitant]

REACTIONS (11)
  - BLOOD PRESSURE DECREASED [None]
  - BRADYCARDIA [None]
  - DIZZINESS [None]
  - HALLUCINATION, VISUAL [None]
  - HYPOMANIA [None]
  - IRRITABILITY [None]
  - NIGHTMARE [None]
  - PSYCHOTIC DISORDER [None]
  - SELF-MEDICATION [None]
  - SUSPICIOUSNESS [None]
  - SYNCOPE [None]
